FAERS Safety Report 4679411-5 (Version None)
Quarter: 2005Q2

REPORT INFORMATION
  Report Type: 
  Country: None (occurrence: None)
  Receive Date: 20050602
  Receipt Date: 20050525
  Transmission Date: 20051028
  Serious: Yes (Hospitalization)
  Sender: FDA-Public Use
  Company Number: PHBS2005JP07615

PATIENT
  Age: 61 Year
  Sex: Male

DRUGS (2)
  1. PIPERACILLIN SODIUM [Concomitant]
  2. DIOVAN [Suspect]
     Route: 048
     Dates: start: 20030321, end: 20030419

REACTIONS (1)
  - COOMBS NEGATIVE HAEMOLYTIC ANAEMIA [None]
